FAERS Safety Report 8227850-8 (Version None)
Quarter: 2012Q1

REPORT INFORMATION
  Report Type: 
  Country: None (occurrence: None)
  Receive Date: 20120322
  Receipt Date: 20120315
  Transmission Date: 20120608
  Serious: Yes (Hospitalization, Other)
  Sender: FDA-Public Use
  Company Number: US-AMGEN-USASP2012017507

PATIENT
  Sex: Male
  Weight: 2.63 kg

DRUGS (4)
  1. PREDNISONE TAB [Concomitant]
     Dosage: 20 MG, QD
     Route: 064
  2. ENBREL [Suspect]
     Dosage: 50 MG, QWK
     Route: 064
     Dates: start: 20080101, end: 20090501
  3. INSULIN [Concomitant]
     Dosage: UNK
     Route: 064
  4. PRENATAL VITAMINS                  /01549301/ [Concomitant]
     Dosage: UNK UNK, QD
     Route: 064

REACTIONS (3)
  - PREMATURE BABY [None]
  - FEEDING DISORDER NEONATAL [None]
  - HYPOTHERMIA NEONATAL [None]
